FAERS Safety Report 20757824 (Version 1)
Quarter: 2022Q2

REPORT INFORMATION
  Report Type: Spontaneous
  Country: US (occurrence: None)
  Receive Date: 20220426
  Receipt Date: 20220426
  Transmission Date: 20220720
  Serious: No
  Sender: FDA-Public Use
  Company Number: None

PATIENT
  Age: 28 Year
  Sex: Female
  Weight: 43.65 kg

DRUGS (5)
  1. ARMODAFINIL [Suspect]
     Active Substance: ARMODAFINIL
     Indication: Hypersomnia
     Route: 048
     Dates: start: 20211126, end: 20220120
  2. ESCITALOPRAM [Concomitant]
     Active Substance: ESCITALOPRAM OXALATE
  3. ARMODAFINIL [Concomitant]
     Active Substance: ARMODAFINIL
  4. BUPROPION [Concomitant]
     Active Substance: BUPROPION
  5. NaturesPlus Source of Life Multi-Vitamin + Mineral (No Iron) [Concomitant]

REACTIONS (7)
  - Product substitution issue [None]
  - Fatigue [None]
  - Headache [None]
  - Road traffic accident [None]
  - Drug ineffective [None]
  - Migraine [None]
  - Suspected product quality issue [None]

NARRATIVE: CASE EVENT DATE: 20211201
